FAERS Safety Report 11674381 (Version 1)
Quarter: 2015Q4

REPORT INFORMATION
  Report Type: Spontaneous
  Country: US (occurrence: US)
  Receive Date: 20151028
  Receipt Date: 20151028
  Transmission Date: 20160304
  Serious: No
  Sender: FDA-Public Use
  Company Number: US-PFIZER INC-2015345487

PATIENT
  Age: 2 Year
  Sex: Male

DRUGS (1)
  1. ADVIL PEDIATRIC DROPS [Suspect]
     Active Substance: IBUPROFEN
     Dosage: UNK

REACTIONS (2)
  - Intentional product misuse [Unknown]
  - Vomiting [Unknown]
